FAERS Safety Report 4977501-0 (Version None)
Quarter: 2006Q2

REPORT INFORMATION
  Report Type: 
  Country: None (occurrence: None)
  Receive Date: 20060420
  Receipt Date: 20060411
  Transmission Date: 20061013
  Serious: Yes (Other)
  Sender: FDA-Public Use
  Company Number: GB-JNJFOC-20060402460

PATIENT
  Age: 54 Year
  Sex: Female
  Weight: 51 kg

DRUGS (6)
  1. REMICADE [Suspect]
     Indication: RHEUMATOID ARTHRITIS
     Route: 042
  2. PREDNISOLONE [Concomitant]
     Indication: RHEUMATOID ARTHRITIS
     Dosage: 2.5-10MG
     Route: 048
  3. LEFLUNOMIDE [Concomitant]
     Indication: RHEUMATOID ARTHRITIS
     Route: 048
     Dates: end: 20051201
  4. CALCICHEW D3 [Concomitant]
     Route: 048
  5. MAXOLON [Concomitant]
     Route: 048
  6. RALOXIFENE [Concomitant]
     Route: 065

REACTIONS (2)
  - LOWER RESPIRATORY TRACT INFECTION [None]
  - MOUTH ULCERATION [None]
